FAERS Safety Report 7261703-7 (Version None)
Quarter: 2011Q1

REPORT INFORMATION
  Report Type: 
  Country: None (occurrence: None)
  Receive Date: 20110130
  Receipt Date: 20101022
  Transmission Date: 20110831
  Serious: No
  Sender: FDA-Public Use
  Company Number: US-ABBOTT-10P-163-0680927-00

PATIENT
  Age: 52 Year
  Sex: Male

DRUGS (7)
  1. HYDROCHLOROTHIAZIDE [Concomitant]
     Indication: HYPERTENSION
  2. CARVEDILOL [Concomitant]
     Indication: HYPERTENSION
  3. ASACOL [Concomitant]
     Indication: CROHN'S DISEASE
  4. HUMIRA [Suspect]
     Indication: CROHN'S DISEASE
     Dates: start: 20100901
  5. DOXYCYCLINE [Concomitant]
     Indication: EYE INFECTION
  6. DILTIAVEN ER [Concomitant]
     Indication: HYPERTENSION
  7. ZANTAC [Concomitant]
     Indication: GASTROOESOPHAGEAL REFLUX DISEASE

REACTIONS (3)
  - HEADACHE [None]
  - EYE INFECTION [None]
  - FATIGUE [None]
